FAERS Safety Report 25855580 (Version 1)
Quarter: 2025Q3

REPORT INFORMATION
  Report Type: Spontaneous
  Country: JP (occurrence: JP)
  Receive Date: 20250927
  Receipt Date: 20250927
  Transmission Date: 20251020
  Serious: Yes (Hospitalization)
  Sender: AMGEN
  Company Number: JP-AMGEN-JPNSP2025188142

PATIENT

DRUGS (2)
  1. IMDELLTRA [Suspect]
     Active Substance: TARLATAMAB-DLLE
     Indication: Small cell lung cancer
     Route: 040
  2. IMDELLTRA [Suspect]
     Active Substance: TARLATAMAB-DLLE
     Route: 040

REACTIONS (3)
  - Lung disorder [Recovered/Resolved]
  - Immune effector cell-associated neurotoxicity syndrome [Recovered/Resolved]
  - Off label use [Unknown]
